FAERS Safety Report 5807625-7 (Version None)
Quarter: 2008Q3

REPORT INFORMATION
  Report Type: 
  Country: None (occurrence: None)
  Receive Date: 20080708
  Receipt Date: 20080630
  Transmission Date: 20090109
  Serious: Yes (Life-Threatening)
  Sender: FDA-Public Use
  Company Number: 083-21880-08061799

PATIENT
  Age: 64 Year
  Sex: Male

DRUGS (13)
  1. REVLIMID [Suspect]
     Indication: MULTIPLE MYELOMA
     Dosage: 25 MG, ORAL
     Route: 048
     Dates: start: 20080617, end: 20080627
  2. REVLIMID [Suspect]
  3. DEXAMETHASONE TAB [Concomitant]
  4. ARANESP (DARBEPOEIN ALFA) [Concomitant]
  5. METFORMIN HCL [Concomitant]
  6. IPERTROFAN (MEPARTRICIN) [Concomitant]
  7. NOVONORM (REPAGLINIDE) [Concomitant]
  8. PRISMA (MESOGLYCAN) [Concomitant]
  9. TICLOPIDINE HYDROCHLORIDE [Concomitant]
  10. ADROVANCE (ALENDRONIC ACID) [Concomitant]
  11. BACTRIM [Concomitant]
  12. ACYCLOVIR [Concomitant]
  13. LANSORPRAZOLE (LANSORPRAZOLE) [Concomitant]

REACTIONS (1)
  - ACUTE MYOCARDIAL INFARCTION [None]
